FAERS Safety Report 15792792 (Version 2)
Quarter: 2019Q1

REPORT INFORMATION
  Report Type: Spontaneous
  Country: US (occurrence: US)
  Receive Date: 20190107
  Receipt Date: 20190225
  Transmission Date: 20190417
  Serious: Yes (Other)
  Sender: FDA-Public Use
  Company Number: US-RECKITT BENCKISER HEALTHCARE INT LIMITED-RB-80081-2019

PATIENT
  Age: 42 Year
  Sex: Male

DRUGS (4)
  1. MUCINEX [Suspect]
     Active Substance: GUAIFENESIN
     Indication: SINUS CONGESTION
  2. MUCINEX [Suspect]
     Active Substance: GUAIFENESIN
     Indication: VOMITING
  3. MUCINEX [Suspect]
     Active Substance: GUAIFENESIN
     Indication: NASOPHARYNGITIS
     Dosage: 20 MILLILITER EVERY 4-6 HOURS (AS LABELLED).
     Route: 065
     Dates: start: 20181218, end: 20181220
  4. MUCINEX [Suspect]
     Active Substance: GUAIFENESIN
     Indication: COUGH

REACTIONS (8)
  - Dry eye [Not Recovered/Not Resolved]
  - Nasal dryness [Recovered/Resolved]
  - Hot flush [Recovered/Resolved]
  - Increased viscosity of upper respiratory secretion [Not Recovered/Not Resolved]
  - Dyspnoea [Recovered/Resolved]
  - Dry mouth [Not Recovered/Not Resolved]
  - Dizziness [Recovered/Resolved]
  - Condition aggravated [Recovered/Resolved]

NARRATIVE: CASE EVENT DATE: 201812
